FAERS Safety Report 8469552-9 (Version None)
Quarter: 2012Q2

REPORT INFORMATION
  Report Type: 
  Country: None (occurrence: None)
  Receive Date: 20120626
  Receipt Date: 20120619
  Transmission Date: 20120825
  Serious: Yes (Other)
  Sender: FDA-Public Use
  Company Number: US-JNJFOC-20120601940

PATIENT
  Age: 68 Year
  Sex: Female

DRUGS (5)
  1. MULTI-VITAMINS [Concomitant]
     Route: 065
  2. SYNTHROID [Concomitant]
     Route: 065
  3. NICOTROL [Suspect]
     Indication: PRODUCT USED FOR UNKNOWN INDICATION
     Dosage: 10 MG PUFF UPTO 10 TIMES A DAY
     Route: 055
  4. DOXYCYCLINE [Concomitant]
     Route: 065
  5. ERGOCALCIFEROL [Concomitant]
     Route: 065

REACTIONS (2)
  - ACTIVITIES OF DAILY LIVING IMPAIRED [None]
  - INFLAMMATORY CARCINOMA OF THE BREAST [None]
